FAERS Safety Report 24370288 (Version 1)
Quarter: 2024Q3

REPORT INFORMATION
  Report Type: Report from Study
  Country: US (occurrence: US)
  Receive Date: 20240927
  Receipt Date: 20240927
  Transmission Date: 20241016
  Serious: No
  Sender: ROCHE
  Company Number: US-ROCHE-3573359

PATIENT
  Age: 74 Year
  Sex: Female
  Weight: 57.61 kg

DRUGS (3)
  1. LUCENTIS [Suspect]
     Active Substance: RANIBIZUMAB
     Indication: Retinal vein occlusion
     Dosage: ROUTE OF ADMINISTRATION IDENTIFIED AS ^EYE INJECTION.^
     Route: 050
     Dates: start: 2023
  2. LUCENTIS [Suspect]
     Active Substance: RANIBIZUMAB
     Dosage: ROUTE OF ADMINISTRATION IDENTIFIED AS ^EYE INJECTION.^?DOS: 03/JAN/2024
     Route: 050
  3. ESSENTIAL OIL (UNK INGREDIENTS) [Concomitant]
     Indication: Blood cholesterol increased
     Dates: start: 2020

REACTIONS (3)
  - Off label use [Unknown]
  - Eye irritation [Not Recovered/Not Resolved]
  - Pain [Not Recovered/Not Resolved]

NARRATIVE: CASE EVENT DATE: 20230101
